FAERS Safety Report 4838368-4 (Version None)
Quarter: 2005Q4

REPORT INFORMATION
  Report Type: 
  Country: None (occurrence: None)
  Receive Date: 20051128
  Receipt Date: 20051114
  Transmission Date: 20060501
  Serious: Yes (Disabling)
  Sender: FDA-Public Use
  Company Number: PHBS2005BE16741

PATIENT
  Age: 35 Year
  Sex: Male

DRUGS (1)
  1. SANDIMMUNE [Suspect]
     Indication: BEHCET'S SYNDROME
     Route: 048

REACTIONS (3)
  - CEREBELLAR SYNDROME [None]
  - GAIT DISTURBANCE [None]
  - MUSCLE SPASTICITY [None]
